FAERS Safety Report 5710926-4 (Version None)
Quarter: 2008Q2

REPORT INFORMATION
  Report Type: 
  Country: None (occurrence: None)
  Receive Date: 20080421
  Receipt Date: 20080414
  Transmission Date: 20081010
  Serious: Yes (Life-Threatening, Hospitalization)
  Sender: FDA-Public Use
  Company Number: PHRM2008FR01303

PATIENT
  Age: 61 Year
  Sex: Male

DRUGS (15)
  1. ESIDRIX [Suspect]
     Route: 048
     Dates: start: 20060419, end: 20060425
  2. LASILIX [Suspect]
     Dosage: 40 MG/DAY
     Route: 048
     Dates: start: 20060409, end: 20060414
  3. LASILIX [Suspect]
     Dosage: FLUCTUANT DOSAGE
     Route: 042
     Dates: start: 20060414, end: 20060425
  4. ZOCOR [Suspect]
     Dosage: 20 MG, QD
     Route: 048
     Dates: start: 20060406, end: 20060424
  5. NEO-MERCAZOLE /SCH/ [Suspect]
     Dosage: 2.5 MG, QD
     Route: 048
     Dates: start: 20060409, end: 20060424
  6. XATRAL - SLOW RELEASE [Suspect]
     Dosage: 10 MG, QD
     Route: 048
     Dates: start: 20060406, end: 20060424
  7. TRIATEC [Suspect]
     Route: 048
     Dates: start: 20060413, end: 20060425
  8. DIFFU K [Suspect]
     Route: 048
     Dates: start: 20060422, end: 20060425
  9. IPRATROPIUM BROMIDE [Suspect]
     Dates: end: 20060425
  10. OFLOXACIN [Suspect]
     Route: 048
     Dates: start: 20060413, end: 20060424
  11. ALDACTONE [Suspect]
     Route: 048
     Dates: start: 20060414, end: 20060425
  12. ISOPTIN [Suspect]
     Route: 048
     Dates: start: 20060416, end: 20060425
  13. PROSCAR [Suspect]
     Route: 048
     Dates: start: 20060418, end: 20060424
  14. BRICANYL [Suspect]
     Dates: start: 20060419, end: 20060425
  15. TARDYFERON [Suspect]
     Route: 048
     Dates: start: 20060422, end: 20060425

REACTIONS (16)
  - ASTERIXIS [None]
  - BLOOD BICARBONATE INCREASED [None]
  - BLOOD PH INCREASED [None]
  - DEPRESSED LEVEL OF CONSCIOUSNESS [None]
  - DIAPHRAGMATIC DISORDER [None]
  - ENCEPHALOPATHY [None]
  - HYPERCAPNIA [None]
  - HYPOVENTILATION [None]
  - LUNG INFILTRATION [None]
  - MECHANICAL VENTILATION [None]
  - METABOLIC ALKALOSIS [None]
  - OXYGEN SUPPLEMENTATION [None]
  - PCO2 INCREASED [None]
  - PO2 DECREASED [None]
  - RENAL IMPAIRMENT [None]
  - SOMNOLENCE [None]
